FAERS Safety Report 18329300 (Version 1)
Quarter: 2020Q3

REPORT INFORMATION
  Report Type: Spontaneous
  Country: HR (occurrence: HR)
  Receive Date: 20200930
  Receipt Date: 20200930
  Transmission Date: 20201103
  Serious: Yes (Other)
  Sender: FDA-Public Use
  Company Number: HR-VIFOR (INTERNATIONAL) INC.-VIT-2020-09781

PATIENT
  Age: 77 Year
  Sex: Female
  Weight: 65 kg

DRUGS (31)
  1. RENVELA [Concomitant]
     Active Substance: SEVELAMER CARBONATE
     Indication: PRODUCT USED FOR UNKNOWN INDICATION
     Dosage: UNK (3+3+2?3 TABLET)
     Route: 065
     Dates: start: 20180910
  2. NEPRO HP [Concomitant]
     Indication: PRODUCT USED FOR UNKNOWN INDICATION
     Dosage: UNK, QD
     Route: 065
     Dates: start: 20180820
  3. RENVELA [Concomitant]
     Active Substance: SEVELAMER CARBONATE
     Dosage: UNK (2+3+2)
     Route: 065
     Dates: start: 20181212
  4. LACIPIL [Concomitant]
     Active Substance: LACIDIPINE
     Indication: PRODUCT USED FOR UNKNOWN INDICATION
     Dosage: 0.5 MG (0.5 MG,0.5 TABLET IN THE MORNING)
     Route: 065
  5. LACIPIL [Concomitant]
     Active Substance: LACIDIPINE
     Dosage: 1 DF  (0.5 DOSAGE FORMS,1X0.5 TBL IN THE MORNING+ 0.5 MG EVENING)
     Route: 065
     Dates: start: 20180521
  6. BINOCRIT [Concomitant]
     Active Substance: ERYTHROPOIETIN
     Dosage: UNK (4000+2000+2000 IU)
     Route: 042
     Dates: start: 20190123
  7. ZEMPLAR [Concomitant]
     Active Substance: PARICALCITOL
     Dosage: 2 UG (PER 2 CAPSULES)
     Route: 065
     Dates: start: 20180828
  8. EBRANTIL [Concomitant]
     Active Substance: URAPIDIL
     Indication: PRODUCT USED FOR UNKNOWN INDICATION
     Dosage: 60 MG, QD  (30 MG,2 IN 1 D)
     Route: 065
     Dates: start: 20180820
  9. ARIMIDEX [Concomitant]
     Active Substance: ANASTROZOLE
     Indication: PRODUCT USED FOR UNKNOWN INDICATION
     Dosage: 1 MG, QD
     Route: 065
     Dates: start: 20180609
  10. BELODIN [Concomitant]
     Indication: PRODUCT USED FOR UNKNOWN INDICATION
     Dosage: UNK, QD
     Route: 065
     Dates: start: 20181224
  11. VELPHORO [Suspect]
     Active Substance: SUCROFERRIC OXYHYDROXIDE
     Indication: HYPERPHOSPHATAEMIA
     Dosage: 500 MG (WITH LUNCH)
     Route: 048
     Dates: start: 20180907
  12. VELPHORO [Suspect]
     Active Substance: SUCROFERRIC OXYHYDROXIDE
     Dosage: 500 MG, BID
     Route: 048
     Dates: start: 20181201, end: 20181212
  13. RENVELA [Concomitant]
     Active Substance: SEVELAMER CARBONATE
     Dosage: UNK (0+0+3)
     Route: 065
     Dates: start: 20181201
  14. RENVELA [Concomitant]
     Active Substance: SEVELAMER CARBONATE
     Dosage: UNK (3+0+3)
     Route: 065
     Dates: start: 20181015
  15. AVELOX [Concomitant]
     Active Substance: MOXIFLOXACIN HYDROCHLORIDE
     Indication: PRODUCT USED FOR UNKNOWN INDICATION
     Dosage: 400 MG, QD
     Route: 065
     Dates: start: 20190114, end: 20190123
  16. VELPHORO [Suspect]
     Active Substance: SUCROFERRIC OXYHYDROXIDE
     Dosage: 500 MG
     Route: 048
     Dates: end: 20191214
  17. VENOFER [Suspect]
     Active Substance: IRON SUCROSE
     Indication: PRODUCT USED FOR UNKNOWN INDICATION
     Dosage: 100 MG
     Route: 042
     Dates: start: 20181116
  18. CONCOR [Concomitant]
     Active Substance: BISOPROLOL FUMARATE
     Indication: PRODUCT USED FOR UNKNOWN INDICATION
     Dosage: 2.5 MG, QD
     Route: 065
  19. KLAVOCIN [Concomitant]
     Active Substance: AMOXICILLIN\CLAVULANIC ACID
     Dosage: UNK
     Route: 065
     Dates: start: 20190111, end: 20190114
  20. FOLIC ACID. [Concomitant]
     Active Substance: FOLIC ACID
     Indication: PRODUCT USED FOR UNKNOWN INDICATION
     Dosage: UNK (HALF TAB)
     Route: 065
  21. RENVELA [Concomitant]
     Active Substance: SEVELAMER CARBONATE
     Dosage: 7 DF (2+3+1 TABLET)
     Route: 065
  22. KLAVOCIN [Concomitant]
     Active Substance: AMOXICILLIN\CLAVULANIC ACID
     Indication: PRODUCT USED FOR UNKNOWN INDICATION
     Dosage: UNK
     Route: 065
     Dates: start: 20190104, end: 20190106
  23. SIMVASTATIN. [Concomitant]
     Active Substance: SIMVASTATIN
     Indication: PRODUCT USED FOR UNKNOWN INDICATION
     Dosage: 10 MG
     Route: 065
  24. PERINDOPRIL ERBUMINE. [Concomitant]
     Active Substance: PERINDOPRIL ERBUMINE
     Indication: PRODUCT USED FOR UNKNOWN INDICATION
     Dosage: 5 MG (IN THE MORNING)
     Route: 065
     Dates: start: 20190123
  25. FERLECIT [Concomitant]
     Indication: PRODUCT USED FOR UNKNOWN INDICATION
     Dosage: UNK UNK, QW
     Route: 065
  26. RENVELA [Concomitant]
     Active Substance: SEVELAMER CARBONATE
     Dosage: UNK (TERMINATING DOSE FOR LUNCH CONTINUING MORNING AND EVENING DOSAGE UNTIL INTRODUCTION OF 7 TABLET
     Route: 065
     Dates: start: 20180427
  27. ZEMPLAR [Concomitant]
     Active Substance: PARICALCITOL
     Indication: PRODUCT USED FOR UNKNOWN INDICATION
     Dosage: UNK (PER 3 CAPSULES)
     Route: 065
  28. SUMAMED [Concomitant]
     Active Substance: AZITHROMYCIN ANHYDROUS
     Indication: PRODUCT USED FOR UNKNOWN INDICATION
     Dosage: 500 MG, QD
     Route: 065
     Dates: start: 20190130
  29. BINOCRIT [Concomitant]
     Active Substance: ERYTHROPOIETIN
     Indication: PRODUCT USED FOR UNKNOWN INDICATION
     Dosage: UNK (4000+2000+2000 IU)
     Route: 042
     Dates: start: 20181010
  30. VELPHORO [Suspect]
     Active Substance: SUCROFERRIC OXYHYDROXIDE
     Dosage: 500 MG (WITH LUNCH)
     Route: 048
     Dates: start: 20180910
  31. EDEMID [Concomitant]
     Active Substance: FUROSEMIDE
     Indication: PRODUCT USED FOR UNKNOWN INDICATION
     Dosage: UNK (HALF IN DHBD (DAYS WITHOUT HEMODIALYSIS))
     Route: 065
     Dates: start: 20190128

REACTIONS (2)
  - Diarrhoea [Recovered/Resolved]
  - Pruritus [Recovered/Resolved]

NARRATIVE: CASE EVENT DATE: 20180907
